FAERS Safety Report 18122670 (Version 1)
Quarter: 2020Q3

REPORT INFORMATION
  Report Type: Spontaneous
  Country: US (occurrence: US)
  Receive Date: 20200806
  Receipt Date: 20200806
  Transmission Date: 20201103
  Serious: Yes (Hospitalization)
  Sender: FDA-Public Use
  Company Number: None

PATIENT
  Age: 38 Year
  Sex: Male
  Weight: 166.6 kg

DRUGS (2)
  1. PHENTERMINE. [Suspect]
     Active Substance: PHENTERMINE
  2. CABERGOLIN [Suspect]
     Active Substance: CABERGOLINE

REACTIONS (3)
  - Cardiac failure congestive [None]
  - Oedema [None]
  - Cellulitis [None]

NARRATIVE: CASE EVENT DATE: 20200802
